FAERS Safety Report 5125678-9 (Version None)
Quarter: 2006Q4

REPORT INFORMATION
  Report Type: 
  Country: None (occurrence: None)
  Receive Date: 20061006
  Receipt Date: 20060918
  Transmission Date: 20070319
  Serious: Yes (Death, Other)
  Sender: FDA-Public Use
  Company Number: 2006SP001888

PATIENT
  Age: 90 Year
  Sex: Female

DRUGS (1)
  1. NITRO-DUR [Suspect]
     Indication: DRUG USE FOR UNKNOWN INDICATION
     Dosage: 0.4 MG; TDER
     Route: 062

REACTIONS (1)
  - DEATH [None]
